FAERS Safety Report 13560174 (Version 3)
Quarter: 2018Q1

REPORT INFORMATION
  Report Type: Spontaneous
  Country: US (occurrence: US)
  Receive Date: 20170518
  Receipt Date: 20180301
  Transmission Date: 20180508
  Serious: No
  Sender: FDA-Public Use
  Company Number: US-PFIZER INC-2017215390

PATIENT
  Age: 71 Year
  Sex: Female
  Weight: 61.69 kg

DRUGS (2)
  1. XELJANZ [Suspect]
     Active Substance: TOFACITINIB CITRATE
     Indication: RHEUMATOID ARTHRITIS
     Dosage: 5 MG, 2X/DAY (ONE IN MORNING AND ONE IN EVENING)
     Route: 048
     Dates: start: 20170223
  2. XELJANZ [Suspect]
     Active Substance: TOFACITINIB CITRATE
     Dosage: 5 MG, 2X/DAY (ONE IN MORNING AND ONE IN EVENING)
     Route: 048
     Dates: end: 201712

REACTIONS (5)
  - Oropharyngeal pain [Unknown]
  - Sinusitis [Recovered/Resolved]
  - Drug dose omission [Unknown]
  - Cough [Recovered/Resolved]
  - Nasopharyngitis [Recovered/Resolved]

NARRATIVE: CASE EVENT DATE: 20170514
